FAERS Safety Report 22310025 (Version 1)
Quarter: 2023Q2

REPORT INFORMATION
  Report Type: Report from Study
  Country: ES (occurrence: ES)
  Receive Date: 20230511
  Receipt Date: 20230511
  Transmission Date: 20230722
  Serious: Yes (Hospitalization)
  Sender: FDA-Public Use
  Company Number: ES-JNJFOC-20230376147

PATIENT
  Age: 40 Year
  Sex: Female
  Weight: 93 kg

DRUGS (18)
  1. TADALAFIL [Suspect]
     Active Substance: TADALAFIL
     Indication: Product used for unknown indication
     Dosage: 20 MILLIGRAM, QD (1 TABLET WITH DINNER)
     Route: 065
  2. EPOPROSTENOL SODIUM [Suspect]
     Active Substance: EPOPROSTENOL SODIUM
     Indication: Pulmonary arterial hypertension
     Dosage: 2 NANOGRAM PER KILOGRAM, QMINUTE
     Route: 042
     Dates: start: 20210824, end: 20210825
  3. EPOPROSTENOL SODIUM [Suspect]
     Active Substance: EPOPROSTENOL SODIUM
     Dosage: 4 NANOGRAM PER KILOGRAM, QMINUTE
     Route: 042
     Dates: start: 20210826, end: 20210829
  4. EPOPROSTENOL SODIUM [Suspect]
     Active Substance: EPOPROSTENOL SODIUM
     Dosage: 6 NANOGRAM PER KILOGRAM, QMINUTE
     Route: 042
     Dates: start: 20210830, end: 20210831
  5. EPOPROSTENOL SODIUM [Suspect]
     Active Substance: EPOPROSTENOL SODIUM
     Dosage: 8 NANOGRAM PER KILOGRAM, QMINUTE
     Route: 042
     Dates: start: 20210901, end: 20210904
  6. EPOPROSTENOL SODIUM [Suspect]
     Active Substance: EPOPROSTENOL SODIUM
     Dosage: 10 NANOGRAM PER KILOGRAM, QMINUTE
     Route: 042
     Dates: start: 20210905, end: 20211213
  7. EPOPROSTENOL SODIUM [Suspect]
     Active Substance: EPOPROSTENOL SODIUM
     Dosage: 12 NANOGRAM PER KILOGRAM, QMINUTE
     Route: 042
     Dates: start: 20211214, end: 20220420
  8. EPOPROSTENOL SODIUM [Suspect]
     Active Substance: EPOPROSTENOL SODIUM
     Dosage: 14 NANOGRAM PER KILOGRAM, QMINUTE
     Route: 042
     Dates: start: 20220421, end: 20221104
  9. MACITENTAN [Suspect]
     Active Substance: MACITENTAN
     Indication: Pulmonary arterial hypertension
     Dosage: 10 MILLIGRAM, QD
     Route: 048
     Dates: start: 20210902
  10. ADCIRCA [Concomitant]
     Active Substance: TADALAFIL
     Indication: Pulmonary arterial hypertension
     Dosage: UNK UNK, QD (TOTAL DAILY DOSE 20)
     Route: 065
     Dates: start: 20210831
  11. REMODULIN [Concomitant]
     Active Substance: TREPROSTINIL
     Indication: Pulmonary arterial hypertension
     Dosage: 28 NANOGRAM PER KILOGRAM, QMINUTE
     Route: 065
     Dates: start: 20221104
  12. METFORMIN [Concomitant]
     Active Substance: METFORMIN HYDROCHLORIDE
     Indication: Diabetes mellitus
     Dosage: 1000 MILLIGRAM, QD (1 TABLET WITH MEALS)
     Route: 048
     Dates: start: 20210824
  13. SPIRONOLACTONE [Concomitant]
     Active Substance: SPIRONOLACTONE
     Indication: Pulmonary arterial hypertension
     Dosage: UNK
     Route: 048
     Dates: start: 20210821
  14. REVATIO [Concomitant]
     Active Substance: SILDENAFIL CITRATE
     Indication: Pulmonary arterial hypertension
     Dosage: UNK UNK, QD (TOTAL DAILY DOSE 60)
     Route: 048
     Dates: start: 20210826, end: 20210831
  15. ALDACTONE [Concomitant]
     Active Substance: SPIRONOLACTONE
     Dosage: 100 MILLIGRAM, QD (1 TABLET WITH BREAKFAST)
     Route: 065
  16. DAPAGLIFLOZIN [Concomitant]
     Active Substance: DAPAGLIFLOZIN
     Indication: Diabetes mellitus
     Dosage: 10 MILLIGRAM, QD (1 TABLET WITH MEALS)
     Route: 048
     Dates: start: 20210906
  17. FUROSEMIDE [Concomitant]
     Active Substance: FUROSEMIDE
     Indication: Pulmonary arterial hypertension
     Dosage: 40 MILLIGRAM, QD (1 TABLET WITH BREAKFAST)
     Route: 048
     Dates: start: 20210821
  18. TREPROSTINIL [Concomitant]
     Active Substance: TREPROSTINIL
     Dosage: 28 NANOGRAM PER KILOGRAM, QMINUTE
     Route: 065
     Dates: start: 20221107

REACTIONS (6)
  - Obesity [Unknown]
  - Device related infection [Recovered/Resolved]
  - Pulmonary arterial hypertension [Unknown]
  - Type 2 diabetes mellitus [Unknown]
  - Treatment noncompliance [Unknown]
  - Medication error [Unknown]

NARRATIVE: CASE EVENT DATE: 20221104
